FAERS Safety Report 18972175 (Version 2)
Quarter: 2021Q1

REPORT INFORMATION
  Report Type: Spontaneous
  Country: US (occurrence: US)
  Receive Date: 20210305
  Receipt Date: 20210325
  Transmission Date: 20210420
  Serious: No
  Sender: FDA-Public Use
  Company Number: US-ASTRAZENECA-2021A095994

PATIENT
  Sex: Male
  Weight: 90.7 kg

DRUGS (3)
  1. FASENRA [Suspect]
     Active Substance: BENRALIZUMAB
     Indication: ACUTE RESPIRATORY DISTRESS SYNDROME
     Route: 058
     Dates: start: 202004
  2. FASENRA [Suspect]
     Active Substance: BENRALIZUMAB
     Indication: ASTHMA
     Route: 058
     Dates: start: 202004
  3. INHALERS [Concomitant]
     Active Substance: UNSPECIFIED INGREDIENT

REACTIONS (4)
  - Hunger [Unknown]
  - Dyspnoea [Unknown]
  - Weight increased [Unknown]
  - Visual impairment [Unknown]
